FAERS Safety Report 4421578-8 (Version None)
Quarter: 2004Q3

REPORT INFORMATION
  Report Type: 
  Country: None (occurrence: None)
  Receive Date: 20040804
  Receipt Date: 20040709
  Transmission Date: 20050211
  Serious: Yes (Hospitalization, Other)
  Sender: FDA-Public Use
  Company Number: USA040772340

PATIENT
  Age: 71 Year
  Sex: Female
  Weight: 55 kg

DRUGS (1)
  1. HUMALOG [Suspect]
     Dosage: 10 U DAY
     Dates: start: 20010101

REACTIONS (3)
  - ARTERIAL REPAIR [None]
  - INJECTION SITE PAIN [None]
  - INJECTION SITE RASH [None]
